FAERS Safety Report 18410077 (Version 1)
Quarter: 2020Q4

REPORT INFORMATION
  Report Type: Spontaneous
  Country: US (occurrence: US)
  Receive Date: 20201021
  Receipt Date: 20201021
  Transmission Date: 20210114
  Serious: Yes (Hospitalization, Disabling)
  Sender: FDA-Public Use
  Company Number: US-MYLANLABS-2020M1088513

PATIENT
  Age: 24 Year
  Sex: Male

DRUGS (4)
  1. DEXAMETHASONE. [Suspect]
     Active Substance: DEXAMETHASONE
     Dosage: REDUCED DOSE
     Route: 065
  2. ETOPOSIDE. [Suspect]
     Active Substance: ETOPOSIDE
     Indication: HAEMOPHAGOCYTIC LYMPHOHISTIOCYTOSIS
     Dosage: 149.3 MILLIGRAM/SQ. METER, BID PLANNED FOR 2 WEEKS
     Route: 065
  3. CAMPATH [Suspect]
     Active Substance: ALEMTUZUMAB
     Indication: HAEMOPHAGOCYTIC LYMPHOHISTIOCYTOSIS
     Route: 065
  4. DEXAMETHASONE. [Suspect]
     Active Substance: DEXAMETHASONE
     Indication: HAEMOPHAGOCYTIC LYMPHOHISTIOCYTOSIS
     Dosage: 8 MILLIGRAM Q12H 28 DOSES, THEN TAPER
     Route: 065

REACTIONS (15)
  - Malnutrition [Unknown]
  - Gaucher^s disease type I [Recovering/Resolving]
  - Osteonecrosis [Recovering/Resolving]
  - Depression [Unknown]
  - Intestinal perforation [Recovering/Resolving]
  - Gait inability [Unknown]
  - Enterococcal infection [Recovering/Resolving]
  - Musculoskeletal discomfort [Unknown]
  - Physical deconditioning [Recovering/Resolving]
  - Peritonitis [Recovering/Resolving]
  - Pelvic abscess [Recovering/Resolving]
  - Hyperglycaemia [Recovering/Resolving]
  - Enterococcal bacteraemia [Recovering/Resolving]
  - Osteomyelitis [Recovering/Resolving]
  - Abscess limb [Recovering/Resolving]
